FAERS Safety Report 7997910-5 (Version None)
Quarter: 2011Q4

REPORT INFORMATION
  Report Type: 
  Country: None (occurrence: None)
  Receive Date: 20111221
  Receipt Date: 20111209
  Transmission Date: 20120403
  Serious: Yes (Other)
  Sender: FDA-Public Use
  Company Number: PHHY2011CN46178

PATIENT
  Age: 78 Year
  Sex: Male

DRUGS (11)
  1. TASIGNA [Suspect]
     Dosage: 400 MG IN THE MORNING AND 200 MG IN THE EVENING
     Route: 048
     Dates: start: 20110503
  2. TASIGNA [Suspect]
     Dosage: 200 MG DAILY
     Route: 048
     Dates: start: 20110424
  3. SODIUM BICARBONATE [Concomitant]
     Dosage: 3 G, DIVIDED INTO 3 DOSES
     Route: 048
     Dates: start: 20110413, end: 20110507
  4. TASIGNA [Suspect]
     Dosage: 400 MG DAILY
     Route: 048
     Dates: start: 20110429
  5. HYDROXYUREA [Concomitant]
     Indication: WHITE BLOOD CELL COUNT DECREASED
     Dosage: 2 G, DIVIDED IN TO 2 TIMES
     Route: 048
     Dates: start: 20110417, end: 20110425
  6. OMEPRAZOLE [Concomitant]
     Dosage: 40 MG DAILY
     Route: 048
  7. CEFMINOX [Concomitant]
     Indication: INFLAMMATION
     Dosage: 4 G, DIVIDED IN TO 2 TIMES
     Route: 048
     Dates: start: 20110418, end: 20110425
  8. SPIRONOLACTONE [Concomitant]
     Dosage: 40 MG, BID
     Dates: start: 20110418, end: 20110507
  9. TASIGNA [Suspect]
     Indication: CHRONIC MYELOID LEUKAEMIA
     Dosage: 200 MG DAILY
     Dates: start: 20110413
  10. FUROSEMIDE [Concomitant]
     Dosage: 20 MG, QD
     Route: 048
     Dates: start: 20110418, end: 20110421
  11. ASPIRIN [Concomitant]
     Dosage: 100 MG, QD
     Route: 048

REACTIONS (13)
  - ELECTROCARDIOGRAM QT PROLONGED [None]
  - HEART RATE INCREASED [None]
  - BRONCHITIS CHRONIC [None]
  - ATRIAL FIBRILLATION [None]
  - CHEST DISCOMFORT [None]
  - EMPHYSEMA [None]
  - LEFT VENTRICULAR FAILURE [None]
  - DYSPNOEA [None]
  - BLOOD PRESSURE INCREASED [None]
  - BLISTER [None]
  - RALES [None]
  - PULMONARY CALCIFICATION [None]
  - ARTERIOSCLEROSIS [None]
